FAERS Safety Report 7133161-4 (Version None)
Quarter: 2010Q4

REPORT INFORMATION
  Report Type: 
  Country: None (occurrence: None)
  Receive Date: 20101117
  Receipt Date: 20101102
  Transmission Date: 20110411
  Serious: Yes (Hospitalization)
  Sender: FDA-Public Use
  Company Number: US-004051

PATIENT
  Sex: Female
  Weight: 120.6568 kg

DRUGS (2)
  1. TRANEXAMIC ACID [Suspect]
     Indication: MENORRHAGIA
     Dates: start: 20101005, end: 20101006
  2. ORTHO-NOVUM [Concomitant]

REACTIONS (3)
  - ANAEMIA [None]
  - INCORRECT DOSE ADMINISTERED [None]
  - JUGULAR VEIN THROMBOSIS [None]
